FAERS Safety Report 5422595-1 (Version None)
Quarter: 2007Q3

REPORT INFORMATION
  Report Type: 
  Country: None (occurrence: None)
  Receive Date: 20070822
  Receipt Date: 20070808
  Transmission Date: 20080115
  Serious: Yes (Other)
  Sender: FDA-Public Use
  Company Number: US-ELI_LILLY_AND_COMPANY-US200708001903

PATIENT
  Age: 49 Year
  Sex: Female

DRUGS (2)
  1. FORTEO [Suspect]
     Dosage: 20 UG, DAILY (1/D)
     Dates: start: 20060401
  2. CALCIUM [Concomitant]
     Indication: SUPPLEMENTATION THERAPY
     Dates: end: 20070801

REACTIONS (5)
  - BLOOD CALCIUM INCREASED [None]
  - BLOOD COPPER INCREASED [None]
  - BLOOD CREATININE INCREASED [None]
  - BLOOD ZINC DECREASED [None]
  - RENAL FAILURE [None]
